FAERS Safety Report 6596988-3 (Version None)
Quarter: 2010Q1

REPORT INFORMATION
  Report Type: 
  Country: None (occurrence: None)
  Receive Date: 20100223
  Receipt Date: 20100218
  Transmission Date: 20100710
  Serious: Yes (Life-Threatening, Hospitalization)
  Sender: FDA-Public Use
  Company Number: BE-CELGENEUS-013-C5013-09122364

PATIENT
  Sex: Male
  Weight: 68 kg

DRUGS (26)
  1. CC-5013 [Suspect]
     Indication: MULTIPLE MYELOMA
     Route: 048
     Dates: start: 20100114, end: 20100118
  2. CC-5013 [Suspect]
     Route: 048
     Dates: start: 20091217, end: 20091223
  3. CC-5013 [Suspect]
     Route: 048
     Dates: start: 20090723
  4. CC-5013 [Suspect]
     Route: 048
     Dates: start: 20100218
  5. DEXAMETHASONE [Suspect]
     Indication: MULTIPLE MYELOMA
     Route: 048
     Dates: start: 20100114
  6. DEXAMETHASONE [Suspect]
     Route: 048
     Dates: start: 20091217, end: 20091225
  7. DEXAMETHASONE [Suspect]
     Route: 048
     Dates: start: 20090723
  8. DIAMICRON [Concomitant]
     Indication: DIABETES MELLITUS
     Route: 048
     Dates: start: 19940101
  9. KREDEX [Concomitant]
     Indication: LEFT VENTRICULAR DYSFUNCTION
     Route: 048
     Dates: start: 20070101
  10. KREDEX [Concomitant]
     Route: 048
     Dates: start: 20100103
  11. LOORTAN [Concomitant]
     Indication: LEFT VENTRICULAR DYSFUNCTION
     Route: 048
     Dates: start: 20070101
  12. METFORMAX [Concomitant]
     Indication: DIABETES MELLITUS
     Route: 048
     Dates: start: 20010101, end: 20091227
  13. METFORMAX [Concomitant]
     Route: 048
     Dates: start: 20100103, end: 20100111
  14. METFORMAX [Concomitant]
     Route: 048
     Dates: start: 20091201
  15. SYMBICORT FORTE [Concomitant]
     Indication: DYSPNOEA
     Dosage: 320/90
     Route: 048
     Dates: start: 20090603
  16. SYMBICORT FORTE [Concomitant]
     Dosage: 320/90
     Route: 055
     Dates: start: 20091201
  17. SYMBICORT FORTE [Concomitant]
  18. CLEXANE [Concomitant]
     Indication: THROMBOSIS PROPHYLAXIS
     Route: 048
     Dates: start: 20090723
  19. CLEXANE [Concomitant]
     Route: 058
     Dates: start: 20100104, end: 20100108
  20. R-CALM [Concomitant]
     Route: 048
     Dates: start: 20090806
  21. R-CALM [Concomitant]
  22. DAFALGAN [Concomitant]
     Indication: PAIN
     Route: 048
     Dates: start: 20090820
  23. ARANESP [Concomitant]
     Indication: ANAEMIA
     Route: 058
     Dates: start: 20091001
  24. ZOMETA [Concomitant]
     Indication: PROPHYLAXIS
     Route: 051
     Dates: start: 20100114, end: 20100114
  25. ZOMETA [Concomitant]
     Route: 051
     Dates: start: 20091217, end: 20091217
  26. LAXIDO [Concomitant]
     Indication: CONSTIPATION
     Route: 048
     Dates: start: 20091204, end: 20091201

REACTIONS (2)
  - INFECTIVE EXACERBATION OF CHRONIC OBSTRUCTIVE AIRWAYS DISEASE [None]
  - PNEUMONIA [None]
